FAERS Safety Report 15407940 (Version 1)
Quarter: 2018Q3

REPORT INFORMATION
  Report Type: Spontaneous
  Country: US (occurrence: US)
  Receive Date: 20180920
  Receipt Date: 20180920
  Transmission Date: 20181010
  Serious: Yes (Hospitalization, Other)
  Sender: FDA-Public Use
  Company Number: US-PFIZER INC-2018371476

PATIENT
  Age: 76 Year
  Sex: Female

DRUGS (2)
  1. REVATIO [Suspect]
     Active Substance: SILDENAFIL CITRATE
     Indication: PULMONARY ARTERIAL HYPERTENSION
     Dosage: 20 MG, UNK
  2. OPSUMIT [Concomitant]
     Active Substance: MACITENTAN
     Indication: PULMONARY ARTERIAL HYPERTENSION
     Dosage: 10 MG, UNK

REACTIONS (6)
  - Aortic valve stenosis [Unknown]
  - Weight increased [Unknown]
  - Aortic stenosis [Unknown]
  - Fluid retention [Not Recovered/Not Resolved]
  - Cardiac failure congestive [Not Recovered/Not Resolved]
  - Blood sodium decreased [Not Recovered/Not Resolved]

NARRATIVE: CASE EVENT DATE: 20180815
